FAERS Safety Report 25853130 (Version 1)
Quarter: 2025Q3

REPORT INFORMATION
  Report Type: Spontaneous
  Country: EU (occurrence: EU)
  Receive Date: 20250926
  Receipt Date: 20250926
  Transmission Date: 20251021
  Serious: Yes (Hospitalization)
  Sender: TEVA
  Company Number: None

PATIENT
  Age: 60 Year
  Sex: Male

DRUGS (4)
  1. QUETIAPINE [Interacting]
     Active Substance: QUETIAPINE
     Indication: Schizophrenia
     Route: 048
     Dates: end: 20250825
  2. LOXAPINE SUCCINATE [Interacting]
     Active Substance: LOXAPINE SUCCINATE
     Indication: Agitation
     Route: 048
     Dates: start: 20250825, end: 20250826
  3. TRIHEXYPHENIDYL HYDROCHLORIDE [Concomitant]
     Active Substance: TRIHEXYPHENIDYL HYDROCHLORIDE
     Indication: Parkinsonism
     Route: 048
     Dates: end: 20250825
  4. TERALITHE [Interacting]
     Active Substance: LITHIUM CARBONATE
     Indication: Schizophrenia
     Dosage: TERALITHE LP, EXTENDED-RELEASE SCORED TABLET
     Route: 048
     Dates: end: 20250825

REACTIONS (2)
  - Extrapyramidal disorder [Recovered/Resolved]
  - Drug interaction [Recovered/Resolved]

NARRATIVE: CASE EVENT DATE: 20250826
